FAERS Safety Report 7434709-2 (Version None)
Quarter: 2011Q2

REPORT INFORMATION
  Report Type: 
  Country: None (occurrence: None)
  Receive Date: 20110425
  Receipt Date: 20110411
  Transmission Date: 20111010
  Serious: Yes (Other)
  Sender: FDA-Public Use
  Company Number: JP-CELGENEUS-087-21880-10102935

PATIENT
  Sex: Female

DRUGS (7)
  1. REVLIMID [Suspect]
     Dosage: 5 MILLIGRAM
     Route: 048
     Dates: start: 20101029, end: 20101118
  2. EXJADE [Concomitant]
     Indication: MYELODYSPLASTIC SYNDROME
     Dosage: 1000 MILLIGRAM
     Route: 048
     Dates: end: 20100929
  3. PRIMOBOLAN [Concomitant]
     Indication: MYELODYSPLASTIC SYNDROME
     Dosage: 15 MILLIGRAM
     Route: 048
     Dates: end: 20100930
  4. REVLIMID [Suspect]
     Dosage: 5 MILLIGRAM
     Route: 048
     Dates: start: 20101126, end: 20101209
  5. WARFARIN [Concomitant]
     Indication: PROPHYLAXIS
     Dosage: 2 MILLIGRAM
     Route: 048
     Dates: end: 20100930
  6. REVLIMID [Suspect]
     Dosage: 10 MILLIGRAM
     Route: 048
     Dates: start: 20100903, end: 20100921
  7. REVLIMID [Suspect]
     Dosage: 5 MILLIGRAM
     Route: 048
     Dates: start: 20101210, end: 20101216

REACTIONS (4)
  - NEUTROPENIA [None]
  - LIVER DISORDER [None]
  - THROMBOCYTOPENIA [None]
  - RASH [None]
